FAERS Safety Report 11198522 (Version 2)
Quarter: 2015Q2

REPORT INFORMATION
  Report Type: Spontaneous
  Country: US (occurrence: US)
  Receive Date: 20150618
  Receipt Date: 20150629
  Transmission Date: 20150821
  Serious: Yes (Death, Other)
  Sender: FDA-Public Use
  Company Number: US-UNITED THERAPEUTICS-UNT-2015-007057

PATIENT
  Age: 68 Year
  Sex: Female
  Weight: 50.79 kg

DRUGS (1)
  1. REMODULIN [Suspect]
     Active Substance: TREPROSTINIL
     Indication: PULMONARY ARTERIAL HYPERTENSION
     Dosage: 0.015 ?G/KG, CONTINUING
     Route: 058
     Dates: start: 20150408, end: 20150601

REACTIONS (2)
  - Arrhythmia [Fatal]
  - Right ventricular failure [Unknown]

NARRATIVE: CASE EVENT DATE: 20150601
